FAERS Safety Report 7042652-6 (Version None)
Quarter: 2010Q4

REPORT INFORMATION
  Report Type: 
  Country: None (occurrence: None)
  Receive Date: 20101013
  Receipt Date: 20091012
  Transmission Date: 20110411
  Serious: No
  Sender: FDA-Public Use
  Company Number: US-ASTRAZENECA-2009SE19558

PATIENT
  Age: 56 Year
  Sex: Female
  Weight: 61.2 kg

DRUGS (3)
  1. SYMBICORT [Suspect]
     Indication: ASTHMA
     Route: 055
     Dates: start: 20080101
  2. RHINOCORT [Concomitant]
  3. PLATINOL [Concomitant]

REACTIONS (1)
  - DYSPNOEA [None]
